FAERS Safety Report 7201335-X (Version None)
Quarter: 2010Q4

REPORT INFORMATION
  Report Type: 
  Country: None (occurrence: None)
  Receive Date: 20101229
  Receipt Date: 20101215
  Transmission Date: 20110411
  Serious: Yes (Other)
  Sender: FDA-Public Use
  Company Number: FR-RANBAXY-2010RR-38861

PATIENT

DRUGS (1)
  1. FLUOXETINE [Suspect]
     Dosage: 40 MG, UNK
     Route: 064

REACTIONS (7)
  - CARDIOMYOPATHY [None]
  - CONGENITAL TRICUSPID VALVE INCOMPETENCE [None]
  - DEVELOPMENTAL DELAY [None]
  - DRUG EXPOSURE DURING PREGNANCY [None]
  - EXOMPHALOS [None]
  - HEART DISEASE CONGENITAL [None]
  - SINGLE UMBILICAL ARTERY [None]
